FAERS Safety Report 6027166-4 (Version None)
Quarter: 2009Q1

REPORT INFORMATION
  Report Type: 
  Country: None (occurrence: None)
  Receive Date: 20090105
  Receipt Date: 20081224
  Transmission Date: 20090719
  Serious: Yes (Hospitalization, Other)
  Sender: FDA-Public Use
  Company Number: US-PFIZER INC-2008081780

PATIENT
  Sex: Female
  Weight: 74.4 kg

DRUGS (15)
  1. LYRICA [Suspect]
     Indication: INTERVERTEBRAL DISC DISPLACEMENT
     Dosage: 50 MG, 3X/DAY
     Route: 048
     Dates: start: 20060828, end: 20080919
  2. LYRICA [Suspect]
     Indication: LUMBAR RADICULOPATHY
  3. INDOCIN - SLOW RELEASE [Concomitant]
  4. LISINOPRIL [Concomitant]
     Route: 048
  5. DILTIAZEM [Concomitant]
     Route: 048
  6. MORPHINE SULFATE [Concomitant]
  7. MS CONTIN [Concomitant]
     Route: 048
  8. WELLBUTRIN XL [Concomitant]
  9. PROZAC [Concomitant]
     Route: 048
  10. FOLIC ACID [Concomitant]
     Route: 048
  11. NEXIUM [Concomitant]
     Route: 048
  12. ORENCIA [Concomitant]
     Dosage: INJECTION MONTHLY; 250MG
  13. ZANAFLEX [Concomitant]
     Dosage: 1-2 TABLETS AT BEDTIME
     Route: 048
  14. BENADRYL [Concomitant]
     Route: 048
  15. METHOTREXATE [Concomitant]
     Dosage: 5 TABLETS WEEKLY
     Route: 048

REACTIONS (9)
  - ANAEMIA [None]
  - GASTROENTERITIS [None]
  - HYPONATRAEMIA [None]
  - HYPOTENSION [None]
  - LEUKOCYTOSIS [None]
  - RECTAL HAEMORRHAGE [None]
  - RENAL FAILURE [None]
  - RHABDOMYOLYSIS [None]
  - URINARY TRACT INFECTION [None]
